FAERS Safety Report 5927757-2 (Version None)
Quarter: 2008Q4

REPORT INFORMATION
  Report Type: 
  Country: None (occurrence: None)
  Receive Date: 20081023
  Receipt Date: 20070917
  Transmission Date: 20090506
  Serious: No
  Sender: FDA-Public Use
  Company Number: US-ASTRAZENECA-2007UW21874

PATIENT
  Age: 70 Year
  Sex: Male

DRUGS (2)
  1. MERREM [Suspect]
     Route: 042
  2. VANCOMYCIN [Concomitant]

REACTIONS (1)
  - ILL-DEFINED DISORDER [None]
